FAERS Safety Report 6009133-X (Version None)
Quarter: 2008Q4

REPORT INFORMATION
  Report Type: 
  Country: None (occurrence: None)
  Receive Date: 20081216
  Receipt Date: 20081204
  Transmission Date: 20090506
  Serious: Yes (Hospitalization, Other)
  Sender: FDA-Public Use
  Company Number: 2008AP003333

PATIENT
  Age: 68 Year
  Sex: Female

DRUGS (12)
  1. CITALOPRAM HYDROBROMIDE [Suspect]
     Indication: DEPRESSION
     Dosage: 20 MG; BID
     Route: 048
     Dates: end: 20081012
  2. ESOMEPRAZOLE MAGNESIUM [Suspect]
     Dosage: 40 MG; QD
     Route: 048
     Dates: end: 20081013
  3. LANSOPRAZOLE [Suspect]
     Route: 048
  4. DIHYDROCODEINE BITARTRATE (DIHYDROCODEINT BITARTRATE) [Concomitant]
  5. ACETAMINOPHEN [Concomitant]
  6. NIFEDIPINE [Concomitant]
  7. PERINDOPRIL (PERINDOPRIL0 [Concomitant]
  8. SALBUTAMOL (SALBUTAMOL) [Concomitant]
  9. FLUTICASONE PROPIONATE [Concomitant]
  10. SALMETEROL XINAFOATE (SALMETEROL XINAFOATE) [Concomitant]
  11. VITAMIN B (VITAMIN B) [Concomitant]
  12. ZOPICLONE (ZOPICLONE) [Concomitant]

REACTIONS (4)
  - CHEST PAIN [None]
  - CHRONIC OBSTRUCTIVE PULMONARY DISEASE [None]
  - CONDITION AGGRAVATED [None]
  - HYPONATRAEMIA [None]
